FAERS Safety Report 11378353 (Version 1)
Quarter: 2015Q3

REPORT INFORMATION
  Report Type: Spontaneous
  Country: US (occurrence: US)
  Receive Date: 20150811
  Receipt Date: 20150811
  Transmission Date: 20151125
  Serious: No
  Sender: FDA-Public Use
  Company Number: US-ELI_LILLY_AND_COMPANY-US201301008377

PATIENT
  Sex: Male
  Weight: 106.58 kg

DRUGS (4)
  1. REMODULIN [Concomitant]
     Active Substance: TREPROSTINIL
     Indication: PULMONARY ARTERIAL HYPERTENSION
     Dosage: 79 NG/KG/MIN. UNK
     Route: 058
     Dates: start: 20021029
  2. TRACLEER [Concomitant]
     Active Substance: BOSENTAN
  3. ADCIRCA [Suspect]
     Active Substance: TADALAFIL
     Dosage: 1 DF, BID
  4. ADCIRCA [Suspect]
     Active Substance: TADALAFIL
     Dosage: 2 DF, QD

REACTIONS (3)
  - Pain in jaw [Unknown]
  - Arthralgia [Unknown]
  - Headache [Unknown]
